FAERS Safety Report 11856637 (Version 1)
Quarter: 2015Q4

REPORT INFORMATION
  Report Type: Spontaneous
  Country: US (occurrence: None)
  Receive Date: 20151218
  Receipt Date: 20151218
  Transmission Date: 20160305
  Serious: Yes (Disabling)
  Sender: FDA-Public Use
  Company Number: None

PATIENT
  Age: 34 Year
  Sex: Female
  Weight: 114.31 kg

DRUGS (2)
  1. PARAGARD T 380A [Suspect]
     Active Substance: COPPER
     Indication: CONTRACEPTION
     Dates: start: 20150427, end: 20151215
  2. CLARITIN [Concomitant]
     Active Substance: LORATADINE

REACTIONS (4)
  - Mood swings [None]
  - Disturbance in attention [None]
  - Depressed mood [None]
  - Haemorrhage [None]

NARRATIVE: CASE EVENT DATE: 20151215
